FAERS Safety Report 22347034 (Version 1)
Quarter: 2023Q2

REPORT INFORMATION
  Report Type: Spontaneous
  Country: CA (occurrence: CA)
  Receive Date: 20230520
  Receipt Date: 20230520
  Transmission Date: 20230721
  Serious: Yes (Hospitalization)
  Sender: FDA-Public Use
  Company Number: CA-TEVA-2023-CA-2887350

PATIENT
  Age: 15 Year
  Sex: Female
  Weight: 66 kg

DRUGS (1)
  1. DOXYCYCLINE [Suspect]
     Active Substance: DOXYCYCLINE
     Indication: Acne
     Route: 048

REACTIONS (5)
  - Duodenitis [Recovered/Resolved]
  - Erosive oesophagitis [Recovered/Resolved]
  - Gastric ulcer [Recovered/Resolved]
  - Mouth ulceration [Recovered/Resolved]
  - Petechiae [Recovered/Resolved]
